FAERS Safety Report 9510731 (Version 1)
Quarter: 2013Q3

REPORT INFORMATION
  Report Type: Spontaneous
  Country: BR (occurrence: BR)
  Receive Date: 20130910
  Receipt Date: 20130910
  Transmission Date: 20140515
  Serious: Yes (Other)
  Sender: FDA-Public Use
  Company Number: BR-AMGEN-BRASP2013062612

PATIENT
  Age: 45 Year
  Sex: Female
  Weight: 93 kg

DRUGS (13)
  1. ENBREL [Suspect]
     Indication: RHEUMATOID ARTHRITIS
     Dosage: 50 MG, ONCE WEEKLY
     Route: 058
     Dates: start: 20130815
  2. METFORMIN [Concomitant]
     Dosage: UNK (STRENGTH 850MG)
  3. CYCLOBENZAPRINE [Concomitant]
     Dosage: UNK (STRENGTH 5MG)
  4. AAS [Concomitant]
     Dosage: UNK, TWICE DAILY
  5. HYDROCHLOROTHIAZIDE [Concomitant]
     Dosage: UNK (STRENGTH 25MG)
  6. METHOTREXATE [Concomitant]
     Dosage: UNK (STRENGTH 2.5MG)
  7. SIMVASTATIN [Concomitant]
     Dosage: UNK (STRENGTH 20MG)
  8. PREDNISONE [Concomitant]
     Dosage: UNK (STRENGTH 5MG)
  9. FOLIC ACID [Concomitant]
     Dosage: UNK (STRENGTH 5MG)
  10. INSULIN NPH                        /01223407/ [Concomitant]
     Dosage: UNK
  11. CALCIUM CARBONATE [Concomitant]
     Dosage: UNK (STRENGTH 600MG)
  12. LOSARTAN [Concomitant]
     Dosage: UNK (STRENGTH 50MG)
  13. OMEPRAZOLE [Concomitant]
     Dosage: UNK (STRENGTH 20MG)

REACTIONS (3)
  - Dyspnoea [Unknown]
  - Blood glucose abnormal [Unknown]
  - Chest pain [Unknown]
